FAERS Safety Report 18820761 (Version 1)
Quarter: 2021Q1

REPORT INFORMATION
  Report Type: Spontaneous
  Country: US (occurrence: US)
  Receive Date: 20210201
  Receipt Date: 20210201
  Transmission Date: 20210419
  Serious: No
  Sender: FDA-Public Use
  Company Number: None

PATIENT
  Age: 47 Year
  Sex: Female

DRUGS (3)
  1. TOPCARE ALL DAY ALLERGY [Suspect]
     Active Substance: CETIRIZINE HYDROCHLORIDE
     Indication: SEASONAL ALLERGY
     Dosage: ?          QUANTITY:300 TABLET(S);?
     Route: 048
     Dates: start: 20120101, end: 20210126
  2. FLONASE [Concomitant]
     Active Substance: FLUTICASONE PROPIONATE
  3. TOPCARE ALL DAY ALLERGY [Suspect]
     Active Substance: CETIRIZINE HYDROCHLORIDE
     Indication: ALLERGY TO ANIMAL
     Dosage: ?          QUANTITY:300 TABLET(S);?
     Route: 048
     Dates: start: 20120101, end: 20210126

REACTIONS (2)
  - Pruritus [None]
  - Insomnia [None]

NARRATIVE: CASE EVENT DATE: 20210126
